FAERS Safety Report 26175097 (Version 1)
Quarter: 2025Q4

REPORT INFORMATION
  Report Type: Spontaneous
  Country: JP (occurrence: JP)
  Receive Date: 20251218
  Receipt Date: 20251218
  Transmission Date: 20260117
  Serious: No
  Sender: PFIZER
  Company Number: JP-PFIZER INC-202500242070

PATIENT
  Age: 85 Year
  Sex: Male

DRUGS (1)
  1. ENBREL [Suspect]
     Active Substance: ETANERCEPT
     Dosage: ONCE A WEEK ON SATURDAYS

REACTIONS (3)
  - Injury associated with device [Unknown]
  - Device deployment issue [Unknown]
  - Injection site bruising [Unknown]

NARRATIVE: CASE EVENT DATE: 20251206
